FAERS Safety Report 4749963-5 (Version None)
Quarter: 2005Q3

REPORT INFORMATION
  Report Type: 
  Country: None (occurrence: None)
  Receive Date: 20050822
  Receipt Date: 20050811
  Transmission Date: 20060218
  Serious: Yes (Death, Hospitalization)
  Sender: FDA-Public Use
  Company Number: B0389412A

PATIENT
  Age: 6 Year
  Sex: Female

DRUGS (3)
  1. ALBUTEROL SULFATE HFA [Suspect]
     Indication: DYSPNOEA
     Dosage: 2.5 MG/SEE DOSAGE TEXT/NEBULISER
  2. IPRATROPIUM BROMIDE [Concomitant]
  3. FLUTICASONE PROPIONATE [Concomitant]

REACTIONS (18)
  - ASPIRATION [None]
  - ASTHMA [None]
  - BASE EXCESS INCREASED [None]
  - BLOOD GLUCOSE INCREASED [None]
  - BLOOD PH DECREASED [None]
  - BLOOD POTASSIUM INCREASED [None]
  - BLOOD SODIUM INCREASED [None]
  - BRONCHIAL OBSTRUCTION [None]
  - CIRCULATORY COLLAPSE [None]
  - COLLAPSE OF LUNG [None]
  - CONDITION AGGRAVATED [None]
  - DRUG INEFFECTIVE [None]
  - LUNG DISORDER [None]
  - LUNG HYPERINFLATION [None]
  - OBSTRUCTIVE AIRWAYS DISORDER [None]
  - PCO2 INCREASED [None]
  - PNEUMOTHORAX [None]
  - RESUSCITATION [None]
